FAERS Safety Report 8742995 (Version 2)
Quarter: 2012Q4

REPORT INFORMATION
  Report Type: 
  Country: DE (occurrence: DE)
  Receive Date: 20120824
  Receipt Date: 20120905
  Transmission Date: 20130627
  Serious: Yes (Hospitalization, Other)
  Sender: FDA-Public Use
  Company Number: DE-JNJFOC-20120811230

PATIENT
  Age: 75 Year
  Sex: Male
  Weight: 95 kg

DRUGS (7)
  1. XARELTO [Suspect]
     Indication: EMBOLISM VENOUS
     Route: 048
     Dates: start: 20120223, end: 20120802
  2. XARELTO [Suspect]
     Indication: THROMBOSIS PROPHYLAXIS
     Route: 048
     Dates: start: 20120223, end: 20120802
  3. METOPROLOL SUCCINATE [Concomitant]
  4. PRAVASTATIN [Concomitant]
  5. CITALOPRAM [Concomitant]
  6. TORASEMID [Concomitant]
  7. DABIGATRAN [Concomitant]

REACTIONS (4)
  - Pulmonary embolism [Recovering/Resolving]
  - Blood creatinine increased [Recovering/Resolving]
  - Diarrhoea [Recovering/Resolving]
  - Syncope [Recovering/Resolving]
